FAERS Safety Report 8874024 (Version 1)
Quarter: 2012Q4

REPORT INFORMATION
  Report Type: 
  Country: FR (occurrence: FR)
  Receive Date: 20121030
  Receipt Date: 20121030
  Transmission Date: 20130627
  Serious: Yes (Hospitalization)
  Sender: FDA-Public Use
  Company Number: FR-PFIZER INC-2012266687

PATIENT
  Age: 86 Year
  Sex: Male

DRUGS (7)
  1. TRIATEC [Suspect]
     Indication: PRODUCT USED FOR UNKNOWN INDICATION
     Dosage: 10 mg, Daily
     Route: 048
     Dates: end: 20120923
  2. LASILIX [Suspect]
     Indication: PRODUCT USED FOR UNKNOWN INDICATION
     Dosage: 60 mg, Daily
     Route: 048
     Dates: end: 20120923
  3. CARDENSIEL [Suspect]
     Indication: PRODUCT USED FOR UNKNOWN INDICATION
     Dosage: 1 DF, Dialy
     Route: 048
     Dates: end: 20120923
  4. PREVISCAN [Suspect]
     Indication: PRODUCT USED FOR UNKNOWN INDICATION
     Dosage: 1 DF, Daily
     Route: 048
     Dates: end: 20120923
  5. ALLOPURINOL [Concomitant]
     Dosage: UNK
     Dates: end: 20120923
  6. MIANSERIN [Concomitant]
     Dosage: UNK
     Dates: end: 20120923
  7. SYMBICORT [Concomitant]
     Dosage: UNK
     Dates: end: 20120923

REACTIONS (5)
  - International normalised ratio increased [Recovered/Resolved]
  - Hyperkalaemia [Recovered/Resolved]
  - Renal failure [Recovered/Resolved]
  - Hypotension [Recovered/Resolved]
  - Diarrhoea [Recovered/Resolved]
